FAERS Safety Report 6832164-4 (Version None)
Quarter: 2010Q3

REPORT INFORMATION
  Report Type: 
  Country: None (occurrence: None)
  Receive Date: 20100712
  Receipt Date: 20100706
  Transmission Date: 20110219
  Serious: Yes (Life-Threatening, Other)
  Sender: FDA-Public Use
  Company Number: US-ASTRAZENECA-2010SE21465

PATIENT
  Age: 64 Year
  Sex: Male
  Weight: 92.1 kg

DRUGS (6)
  1. CRESTOR [Suspect]
     Indication: HYPERLIPIDAEMIA
     Route: 048
     Dates: start: 20060312
  2. CRESTOR [Suspect]
     Route: 048
  3. COTONSIN [Concomitant]
     Indication: HYPERTENSION
  4. ALLOPURINOL [Concomitant]
     Indication: GOUT
  5. ALLOPURINOL [Concomitant]
     Indication: NEPHROLITHIASIS
  6. NIASPAN [Concomitant]

REACTIONS (1)
  - RENAL CANCER [None]
